FAERS Safety Report 9667148 (Version 2)
Quarter: 2014Q3

REPORT INFORMATION
  Report Type: Spontaneous
  Country: US (occurrence: US)
  Receive Date: 20131104
  Receipt Date: 20140826
  Transmission Date: 20150326
  Serious: No
  Sender: FDA-Public Use
  Company Number: US-BIOGENIDEC-2013BI090267

PATIENT
  Age: 48 Year
  Sex: Female

DRUGS (8)
  1. TECFIDERA [Suspect]
     Active Substance: DIMETHYL FUMARATE
     Indication: MULTIPLE SCLEROSIS
     Route: 048
     Dates: start: 20130801, end: 20131016
  2. PEPCID [Concomitant]
     Active Substance: FAMOTIDINE
  3. COLONOPIN (PRESUME KLONOPIN) [Concomitant]
  4. BAYER [Concomitant]
     Active Substance: ASPIRIN
  5. VITAMIN D [Concomitant]
     Active Substance: CHOLECALCIFEROL
  6. IMODIUM [Concomitant]
     Active Substance: LOPERAMIDE HYDROCHLORIDE
  7. NUVIGIL [Concomitant]
     Active Substance: ARMODAFINIL
  8. GAVAPENTIN [Concomitant]

REACTIONS (17)
  - Feeling abnormal [Unknown]
  - Stress [Unknown]
  - Neck pain [Unknown]
  - Pain [Unknown]
  - Crying [Unknown]
  - Paraesthesia [Unknown]
  - Adnexa uteri pain [Unknown]
  - Dyspepsia [Unknown]
  - Back pain [Unknown]
  - Headache [Unknown]
  - Abdominal pain upper [Recovered/Resolved]
  - Epigastric discomfort [Recovered/Resolved]
  - Fatigue [Not Recovered/Not Resolved]
  - Dysmenorrhoea [Unknown]
  - Aphasia [Unknown]
  - Emotional disorder [Unknown]
  - Abdominal distension [Recovered/Resolved]

NARRATIVE: CASE EVENT DATE: 20130906
